FAERS Safety Report 15246459 (Version 2)
Quarter: 2018Q3

REPORT INFORMATION
  Report Type: Spontaneous
  Country: US (occurrence: UM)
  Receive Date: 20180806
  Receipt Date: 20180922
  Transmission Date: 20181010
  Serious: No
  Sender: FDA-Public Use
  Company Number: US-JNJFOC-20180722261

PATIENT
  Age: 69 Year
  Sex: Female
  Weight: 57.15 kg

DRUGS (5)
  1. FOLIC ACID. [Concomitant]
     Active Substance: FOLIC ACID
     Indication: ROUTINE HEALTH MAINTENANCE
     Route: 065
  2. PEPCID AC [Suspect]
     Active Substance: FAMOTIDINE
     Route: 048
  3. ACETAMINOPHEN. [Concomitant]
     Active Substance: ACETAMINOPHEN
     Indication: PAIN IN EXTREMITY
     Route: 065
     Dates: start: 20180716
  4. TYLENOL [Concomitant]
     Active Substance: ACETAMINOPHEN
     Indication: PAIN
     Route: 065
  5. PEPCID AC [Suspect]
     Active Substance: FAMOTIDINE
     Indication: NAUSEA
     Dosage: 1 TABLET ON 16?JUL?2018 AND 1 TABLET ON 17?JUL?2018
     Route: 048
     Dates: start: 20180715, end: 201807

REACTIONS (5)
  - Urticaria [Recovered/Resolved]
  - Off label use [Unknown]
  - Erythema [Not Recovered/Not Resolved]
  - Product use in unapproved indication [Unknown]
  - Pruritus [Recovered/Resolved]

NARRATIVE: CASE EVENT DATE: 20180715
